FAERS Safety Report 6734125-2 (Version None)
Quarter: 2010Q2

REPORT INFORMATION
  Report Type: 
  Country: None (occurrence: None)
  Receive Date: 20100520
  Receipt Date: 20100511
  Transmission Date: 20101027
  Serious: Yes (Other)
  Sender: FDA-Public Use
  Company Number: US-PFIZER INC-2010042803

PATIENT
  Sex: Male
  Weight: 85.261 kg

DRUGS (9)
  1. LIPITOR [Suspect]
     Indication: BLOOD CHOLESTEROL
     Dosage: 40 MG, 1X/DAY
     Route: 048
     Dates: start: 20091221, end: 20100319
  2. LIPITOR [Suspect]
     Indication: CORONARY ARTERY DISEASE
  3. SPIRONOLACTONE [Concomitant]
     Dosage: 25 ONCE DAILY
  4. CARVEDILOL [Concomitant]
     Dosage: 6.25 ONCE DAILY
  5. CARVEDILOL [Concomitant]
     Dosage: UNIT DOSE: 6.25; FREQUENCY: 2X/DAY,
  6. LISINOPRIL [Concomitant]
     Dosage: 10 MG, 1X/DAY
  7. LISINOPRIL [Concomitant]
     Dosage: UNIT DOSE: 10;
  8. PLAVIX [Concomitant]
     Dosage: 75 ONCE DAILY
  9. ACETYLSALICYLIC ACID [Concomitant]
     Dosage: UNIT DOSE: 2;

REACTIONS (4)
  - CARDIAC ARREST [None]
  - CHEST PAIN [None]
  - MYALGIA [None]
  - SCIATICA [None]
